FAERS Safety Report 8427200-8 (Version None)
Quarter: 2012Q2

REPORT INFORMATION
  Report Type: 
  Country: None (occurrence: None)
  Receive Date: 20120611
  Receipt Date: 20120604
  Transmission Date: 20120825
  Serious: Yes (Other)
  Sender: FDA-Public Use
  Company Number: US-PFIZER INC-2012085674

PATIENT
  Sex: Female
  Weight: 90.703 kg

DRUGS (8)
  1. PRISTIQ [Suspect]
     Indication: DEPRESSION
     Dosage: UNK
     Dates: start: 20110101
  2. KLONOPIN [Suspect]
     Dosage: UNK
  3. CARVEDILOL [Concomitant]
     Indication: BLOOD PRESSURE ABNORMAL
     Dosage: 25 MG, 2X/DAY
  4. PRISTIQ [Suspect]
     Indication: DISTURBANCE IN ATTENTION
     Dosage: 100 MG, DAILY
  5. KLONOPIN [Suspect]
     Dosage: 2 MG, 3X/DAY
  6. WELLBUTRIN [Concomitant]
     Indication: SMOKING CESSATION THERAPY
     Dosage: 150 MG, DAILY
     Dates: start: 20120330
  7. KLONOPIN [Suspect]
     Indication: BIPOLAR DISORDER
     Dosage: 1 MG, UNK
     Dates: start: 20050101
  8. ATENOLOL [Concomitant]
     Indication: BLOOD PRESSURE ABNORMAL
     Dosage: 25 MG, DAILY

REACTIONS (10)
  - EMOTIONAL DISORDER [None]
  - DRUG DOSE OMISSION [None]
  - DYSPHONIA [None]
  - WEIGHT INCREASED [None]
  - STRESS [None]
  - HEADACHE [None]
  - SURGERY [None]
  - ANXIETY [None]
  - FORMICATION [None]
  - ANGER [None]
